FAERS Safety Report 6930507-4 (Version None)
Quarter: 2010Q3

REPORT INFORMATION
  Report Type: 
  Country: None (occurrence: None)
  Receive Date: 20100818
  Receipt Date: 20100806
  Transmission Date: 20110219
  Serious: Yes (Hospitalization)
  Sender: FDA-Public Use
  Company Number: A0837845A

PATIENT
  Age: 70 Year
  Sex: Male
  Weight: 105.5 kg

DRUGS (1)
  1. AVANDIA [Suspect]
     Indication: DIABETES MELLITUS
     Dosage: 4MG TWICE PER DAY
     Route: 048
     Dates: start: 20060901, end: 20070601

REACTIONS (6)
  - ACUTE CORONARY SYNDROME [None]
  - INFECTION [None]
  - LEG AMPUTATION [None]
  - MYOCARDIAL INFARCTION [None]
  - PROCEDURAL PAIN [None]
  - WOUND INFECTION [None]
